FAERS Safety Report 25462770 (Version 7)
Quarter: 2025Q4

REPORT INFORMATION
  Report Type: Spontaneous
  Country: AU (occurrence: AU)
  Receive Date: 20250620
  Receipt Date: 20251211
  Transmission Date: 20260117
  Serious: Yes (Hospitalization)
  Sender: MERCK SHARP & DOHME LLC
  Company Number: AU-009507513-2296618

PATIENT
  Age: 65 Year
  Sex: Female
  Weight: 52 kg

DRUGS (21)
  1. KEYTRUDA [Suspect]
     Active Substance: PEMBROLIZUMAB
     Indication: Non-small cell lung cancer
     Dosage: TIME INTERVAL: CYCLICAL: 200 MG, IV, CYCLICAL
     Route: 042
     Dates: start: 20250404, end: 20250404
  2. KEYTRUDA [Suspect]
     Active Substance: PEMBROLIZUMAB
     Indication: Non-small cell lung cancer
     Dosage: TIME INTERVAL: CYCLICAL: 200 MG, IV, CYCLICAL
     Route: 042
     Dates: start: 20250516, end: 20250516
  3. ASPIRIN [Concomitant]
     Active Substance: ASPIRIN
     Dates: start: 20050206
  4. NEBIVOLOL [Concomitant]
     Active Substance: NEBIVOLOL
     Dates: start: 20250207
  5. PANTOPRAZOLE [Concomitant]
     Active Substance: PANTOPRAZOLE
     Dates: start: 20250206
  6. ACETAMINOPHEN [Concomitant]
     Active Substance: ACETAMINOPHEN
     Dates: start: 20250206
  7. BRICANYL [Concomitant]
     Active Substance: TERBUTALINE SULFATE
     Dates: start: 2014
  8. SPIRIVA [Concomitant]
     Active Substance: TIOTROPIUM BROMIDE MONOHYDRATE
     Dates: start: 2014
  9. FOLIC ACID [Concomitant]
     Active Substance: FOLIC ACID
     Dates: start: 20250327
  10. NETUPITANT\PALONOSETRON [Concomitant]
     Active Substance: NETUPITANT\PALONOSETRON
     Dates: start: 20250403
  11. PEMETREXED [Concomitant]
     Active Substance: PEMETREXED
     Indication: Non-small cell lung cancer
     Dosage: TIME INTERVAL: CYCLICAL
     Route: 042
  12. CARBOPLATIN [Concomitant]
     Active Substance: CARBOPLATIN
     Indication: Non-small cell lung cancer
     Dosage: TIME INTERVAL: CYCLICAL
     Route: 042
  13. ALBUTEROL [Concomitant]
     Active Substance: ALBUTEROL
  14. SPIRONOLACTONE [Concomitant]
     Active Substance: SPIRONOLACTONE
     Dates: start: 20250206
  15. VITAMIN B12 [Concomitant]
     Active Substance: CYANOCOBALAMIN
     Dates: start: 20250327
  16. LACTULOSE [Concomitant]
     Active Substance: LACTULOSE
     Dates: start: 20250329
  17. LEVOTHYROXINE [Concomitant]
     Active Substance: LEVOTHYROXINE
     Dates: start: 2012
  18. KAPANOL (MORPHINE SULFATE) [Concomitant]
     Dates: start: 20250310
  19. MORPHINE [Concomitant]
     Active Substance: MORPHINE
     Dates: start: 20250306
  20. ROSUVASTATIN [Concomitant]
     Active Substance: ROSUVASTATIN
     Dates: start: 20250206
  21. DEXAMETHASONE [Concomitant]
     Active Substance: DEXAMETHASONE

REACTIONS (3)
  - Lower respiratory tract infection [Recovered/Resolved]
  - Immune-mediated myocarditis [Recovered/Resolved]
  - Pneumonia [Not Recovered/Not Resolved]

NARRATIVE: CASE EVENT DATE: 20250417
